FAERS Safety Report 16694010 (Version 1)
Quarter: 2019Q3

REPORT INFORMATION
  Report Type: Spontaneous
  Country: US (occurrence: US)
  Receive Date: 20190812
  Receipt Date: 20190812
  Transmission Date: 20191004
  Serious: No
  Sender: FDA-Public Use
  Company Number: US-SA-2019SA219612

PATIENT
  Sex: Female

DRUGS (26)
  1. NORTRIPTYLINE [Concomitant]
     Active Substance: NORTRIPTYLINE
  2. VENTOLIN HFA [Concomitant]
     Active Substance: ALBUTEROL SULFATE
  3. DILTIAZEM. [Concomitant]
     Active Substance: DILTIAZEM
  4. HYDROCODONE/ACETAMINOPHEN [Concomitant]
     Active Substance: ACETAMINOPHEN\HYDROCODONE
  5. PANTOPRAZOLE SODIUM. [Concomitant]
     Active Substance: PANTOPRAZOLE SODIUM
  6. PREDNISONE. [Concomitant]
     Active Substance: PREDNISONE
  7. TYLENOL [Concomitant]
     Active Substance: ACETAMINOPHEN
  8. CARISOPRODOL. [Concomitant]
     Active Substance: CARISOPRODOL
  9. RISEDRONATE SODIUM. [Concomitant]
     Active Substance: RISEDRONATE SODIUM
  10. IPRATROPIUM/ALBUTEROL [Concomitant]
     Active Substance: ALBUTEROL\IPRATROPIUM
  11. MONTELUKAST SODIUM. [Concomitant]
     Active Substance: MONTELUKAST SODIUM
  12. SAVELLA [Concomitant]
     Active Substance: MILNACIPRAN HYDROCHLORIDE
  13. INCRUSE ELLIPTA [Concomitant]
     Active Substance: UMECLIDINIUM BROMIDE
  14. B COMPLEX [AMINOBENZOIC ACID;BIOTIN;CALCIUM PANTOTHENATE;CHOLINE BITAR [Concomitant]
  15. BREO ELLIPTA [Concomitant]
     Active Substance: FLUTICASONE FUROATE\VILANTEROL TRIFENATATE
  16. IRBESARTAN. [Concomitant]
     Active Substance: IRBESARTAN
  17. ADVIL [IBUPROFEN] [Concomitant]
     Active Substance: IBUPROFEN
  18. MULTIVITAMINS [VITAMINS NOS] [Concomitant]
     Active Substance: VITAMINS
  19. VITAMIN C [Concomitant]
     Active Substance: ASCORBIC ACID
  20. BACLOFEN. [Concomitant]
     Active Substance: BACLOFEN
  21. CARISOPRODOL. [Concomitant]
     Active Substance: CARISOPRODOL
  22. VITAMIN B12 [Concomitant]
     Active Substance: CYANOCOBALAMIN
  23. DULCOLAX (BISACODYL) [Concomitant]
     Active Substance: BISACODYL
  24. DUPIXENT [Suspect]
     Active Substance: DUPILUMAB
     Indication: ASTHMA
     Dosage: 200 MG, QOW
     Route: 058
     Dates: start: 20190703
  25. ALBUTEROL SULFATE. [Concomitant]
     Active Substance: ALBUTEROL SULFATE
  26. SPIRONOLACTONE AND HYDROCHLOROTHIAZIDE [Concomitant]
     Active Substance: HYDROCHLOROTHIAZIDE\SPIRONOLACTONE

REACTIONS (2)
  - Injection site erythema [Unknown]
  - Injection site swelling [Unknown]
